FAERS Safety Report 19453507 (Version 2)
Quarter: 2021Q3

REPORT INFORMATION
  Report Type: Spontaneous
  Country: CA (occurrence: CA)
  Receive Date: 20210623
  Receipt Date: 20210819
  Transmission Date: 20211014
  Serious: Yes (Other)
  Sender: FDA-Public Use
  Company Number: CA-PFIZER INC-2021690186

PATIENT
  Age: 51 Year
  Sex: Male

DRUGS (4)
  1. METHOTREXATE SODIUM. [Suspect]
     Active Substance: METHOTREXATE SODIUM
     Dosage: 1 DF
  2. PREDNISONE. [Concomitant]
     Active Substance: PREDNISONE
     Dosage: UNK
  3. HYDROXYCHLOROQUINE [Concomitant]
     Active Substance: HYDROXYCHLOROQUINE
     Dosage: UNK
  4. SIMPONI [Concomitant]
     Active Substance: GOLIMUMAB
     Dosage: 1 DF
     Dates: end: 20210608

REACTIONS (4)
  - Rheumatoid arthritis [Unknown]
  - Back injury [Unknown]
  - Head injury [Unknown]
  - Drug ineffective [Unknown]
